FAERS Safety Report 25880211 (Version 1)
Quarter: 2025Q4

REPORT INFORMATION
  Report Type: Spontaneous
  Country: GB (occurrence: GB)
  Receive Date: 20251004
  Receipt Date: 20251004
  Transmission Date: 20260118
  Serious: Yes (Other)
  Sender: AUROBINDO
  Company Number: GB-MLMSERVICE-20250923-PI648060-00057-2

PATIENT
  Age: 54 Year
  Sex: Female

DRUGS (5)
  1. ATORVASTATIN [Suspect]
     Active Substance: ATORVASTATIN
     Indication: Dyslipidaemia
     Dosage: 10 MILLIGRAM, ONCE A DAY
     Route: 065
  2. ATORVASTATIN [Suspect]
     Active Substance: ATORVASTATIN
     Indication: Prophylaxis
  3. ATORVASTATIN [Suspect]
     Active Substance: ATORVASTATIN
     Indication: Blood cholesterol increased
  4. BISOPROLOL [Concomitant]
     Active Substance: BISOPROLOL
     Indication: Hypertension
     Dosage: 2.5 MILLIGRAM, ONCE A DAY (TAKING FOR EIGHT YEARS)
     Route: 065
  5. AMLODIPINE [Concomitant]
     Active Substance: AMLODIPINE BESYLATE
     Indication: Hypertension
     Dosage: 2.5 MILLIGRAM, ONCE A DAY (TAKING FOR EIGHT YEARS)
     Route: 065

REACTIONS (7)
  - Behaviour disorder [Recovered/Resolved]
  - Irritability [Recovered/Resolved]
  - Anger [Recovered/Resolved]
  - Impatience [Recovered/Resolved]
  - Tearfulness [Recovered/Resolved]
  - Apathy [Recovered/Resolved]
  - Social avoidant behaviour [Recovered/Resolved]
